FAERS Safety Report 17229919 (Version 1)
Quarter: 2020Q1

REPORT INFORMATION
  Report Type: Spontaneous
  Country: ES (occurrence: ES)
  Receive Date: 20200103
  Receipt Date: 20200103
  Transmission Date: 20200409
  Serious: Yes (Other)
  Sender: FDA-Public Use
  Company Number: ES-ASTRAZENECA-2019SF92069

PATIENT
  Age: 51 Year
  Sex: Female

DRUGS (1)
  1. ESOMEPRAZOL [Suspect]
     Active Substance: ESOMEPRAZOLE
     Indication: OESOPHAGITIS
     Route: 048
     Dates: start: 20191205

REACTIONS (1)
  - Genital haemorrhage [Unknown]

NARRATIVE: CASE EVENT DATE: 20191210
